FAERS Safety Report 16675914 (Version 1)
Quarter: 2019Q3

REPORT INFORMATION
  Report Type: Spontaneous
  Country: US (occurrence: US)
  Receive Date: 20190807
  Receipt Date: 20190807
  Transmission Date: 20191004
  Serious: No
  Sender: FDA-Public Use
  Company Number: US-JNJFOC-20190741235

PATIENT
  Age: 47 Year
  Sex: Male

DRUGS (2)
  1. TYLENOL [Suspect]
     Active Substance: ACETAMINOPHEN
     Dosage: 1500 MG EACH DOSE 8 DOSES (3 GEL CAPS)
     Route: 048
     Dates: start: 20190727
  2. TYLENOL [Suspect]
     Active Substance: ACETAMINOPHEN
     Indication: PROCEDURAL PAIN
     Route: 048
     Dates: start: 20190725

REACTIONS (3)
  - Incorrect dose administered [Unknown]
  - Pain [Unknown]
  - Wrong product administered [Unknown]

NARRATIVE: CASE EVENT DATE: 20190725
